FAERS Safety Report 5573207-8 (Version None)
Quarter: 2007Q4

REPORT INFORMATION
  Report Type: 
  Country: None (occurrence: None)
  Receive Date: 20071220
  Receipt Date: 20071205
  Transmission Date: 20080405
  Serious: Yes (Hospitalization)
  Sender: FDA-Public Use
  Company Number: DSA_31008_2007

PATIENT
  Sex: Male

DRUGS (3)
  1. LORAZEPAM [Suspect]
     Dosage: 30 DF 1X NOT THE PRESCRIBED AMOUNT. ORAL
     Route: 048
     Dates: start: 20071204, end: 20071204
  2. OXAZEPAM [Suspect]
     Dosage: 36 DF 1X NOT THE PRESCRIBED AMOUNT. ORAL
     Route: 048
     Dates: start: 20071204, end: 20071204
  3. ZYPREXA [Suspect]
     Dosage: 70 MG 1X NOT THE PRESCRIBED AMOUNT. ORAL
     Route: 048
     Dates: start: 20071204, end: 20071204

REACTIONS (5)
  - GASTROINTESTINAL SOUNDS ABNORMAL [None]
  - MULTIPLE DRUG OVERDOSE INTENTIONAL [None]
  - OXYGEN SATURATION DECREASED [None]
  - SOMNOLENCE [None]
  - SUICIDE ATTEMPT [None]
